FAERS Safety Report 7842751-2 (Version None)
Quarter: 2011Q4

REPORT INFORMATION
  Report Type: 
  Country: None (occurrence: None)
  Receive Date: 20111025
  Receipt Date: 20111010
  Transmission Date: 20120403
  Serious: Yes (Hospitalization)
  Sender: FDA-Public Use
  Company Number: BE-ROCHE-1003859

PATIENT
  Age: 44 Year
  Sex: Female

DRUGS (3)
  1. ZOMETA [Concomitant]
     Dates: start: 20110909
  2. XANAX [Concomitant]
     Dates: start: 20110101
  3. VEMURAFENIB [Suspect]
     Indication: METASTATIC MALIGNANT MELANOMA
     Route: 048
     Dates: start: 20110909

REACTIONS (1)
  - NERVOUS SYSTEM DISORDER [None]
